FAERS Safety Report 7925188-7 (Version None)
Quarter: 2011Q4

REPORT INFORMATION
  Report Type: 
  Country: None (occurrence: None)
  Receive Date: 20111118
  Receipt Date: 20110404
  Transmission Date: 20120403
  Serious: No
  Sender: FDA-Public Use
  Company Number: US-AMGEN-USASP2011004162

PATIENT
  Age: 43 Year
  Sex: Female

DRUGS (10)
  1. DYAZIDE [Concomitant]
     Dosage: UNK UNK, QD
  2. LYRICA [Concomitant]
     Dosage: 150 MG, TID
     Route: 048
  3. LASIX [Concomitant]
     Dosage: 40 MG, UNK
  4. LISINOPRIL [Concomitant]
     Dosage: UNK
  5. MORPHINE SULFATE [Concomitant]
     Dosage: 30 MG, BID
     Route: 048
  6. PROTONIX [Concomitant]
     Dosage: 40 MG, UNK
  7. HUMIRA [Suspect]
     Indication: RHEUMATOID ARTHRITIS
     Dosage: 40 MG, QWK
     Route: 058
     Dates: start: 20100609, end: 20101101
  8. CYMBALTA [Concomitant]
     Dosage: 60 MG, QD
  9. VIVELLE-DOT [Concomitant]
  10. ENBREL [Suspect]
     Indication: RHEUMATOID ARTHRITIS
     Dosage: 50 MG, QWK
     Dates: start: 20091126

REACTIONS (5)
  - SWELLING [None]
  - NEUROPATHY PERIPHERAL [None]
  - OEDEMA PERIPHERAL [None]
  - HYPERTENSION [None]
  - PARAESTHESIA [None]
